FAERS Safety Report 5852121-4 (Version None)
Quarter: 2008Q3

REPORT INFORMATION
  Report Type: 
  Country: None (occurrence: None)
  Receive Date: 20080819
  Receipt Date: 20080806
  Transmission Date: 20090109
  Serious: Yes (Hospitalization, Other)
  Sender: FDA-Public Use
  Company Number: 15423

PATIENT
  Age: 74 Year
  Sex: Female
  Weight: 81.6475 kg

DRUGS (2)
  1. MORPHINE SULFATE [Suspect]
     Indication: CANCER PAIN
     Dosage: 100 MG TID ORALLY
     Route: 048
     Dates: end: 20080628
  2. MORPHINE SULFATE [Suspect]

REACTIONS (2)
  - OVERDOSE [None]
  - PHARMACEUTICAL PRODUCT COMPLAINT [None]
